FAERS Safety Report 25984405 (Version 1)
Quarter: 2025Q4

REPORT INFORMATION
  Report Type: Report from Study
  Country: KR (occurrence: KR)
  Receive Date: 20251031
  Receipt Date: 20251031
  Transmission Date: 20260118
  Serious: Yes (Hospitalization, Other)
  Sender: PFIZER
  Company Number: KR-ONO-2025KR002986

PATIENT
  Age: 54 Year
  Sex: Female

DRUGS (27)
  1. BRAFTOVI [Suspect]
     Active Substance: ENCORAFENIB
     Indication: Colon cancer
     Dosage: 300 MG, EVERYDAY
     Route: 048
     Dates: start: 20240913, end: 20240915
  2. BRAFTOVI [Suspect]
     Active Substance: ENCORAFENIB
     Dosage: 300 MG, EVERYDAY
     Route: 048
     Dates: start: 20240921, end: 20241017
  3. BRAFTOVI [Suspect]
     Active Substance: ENCORAFENIB
     Dosage: 225 MG, EVERYDAY
     Route: 048
     Dates: start: 20241018, end: 20250206
  4. BRAFTOVI [Suspect]
     Active Substance: ENCORAFENIB
     Dosage: 150 MG, EVERYDAY
     Route: 048
     Dates: start: 20250207, end: 20250213
  5. BRAFTOVI [Suspect]
     Active Substance: ENCORAFENIB
     Dosage: 225 MG, EVERYDAY
     Route: 048
     Dates: start: 20250214, end: 20250320
  6. BRAFTOVI [Suspect]
     Active Substance: ENCORAFENIB
     Dosage: 150 MG, EVERYDAY
     Route: 048
     Dates: start: 20250321, end: 20250501
  7. BRAFTOVI [Suspect]
     Active Substance: ENCORAFENIB
     Dosage: 225 MG, EVERYDAY
     Route: 048
     Dates: start: 20250502, end: 20250522
  8. BRAFTOVI [Suspect]
     Active Substance: ENCORAFENIB
     Dosage: 150 MG, EVERYDAY
     Route: 048
     Dates: start: 20250523
  9. BRAFTOVI [Suspect]
     Active Substance: ENCORAFENIB
     Dosage: 150 MG, EVERYDAY
     Route: 048
     Dates: start: 20250620
  10. BRAFTOVI [Suspect]
     Active Substance: ENCORAFENIB
     Dosage: 150 MG, EVERYDAY
     Route: 048
     Dates: start: 20250711
  11. CETUXIMAB [Suspect]
     Active Substance: CETUXIMAB
     Indication: Colon cancer
     Dosage: 544 MG, QW
     Route: 042
     Dates: start: 20240913, end: 20240915
  12. CETUXIMAB [Suspect]
     Active Substance: CETUXIMAB
     Dosage: 329 MG, QW
     Route: 042
     Dates: start: 20241002, end: 20241009
  13. CETUXIMAB [Suspect]
     Active Substance: CETUXIMAB
     Dosage: 330 MG, QW
     Route: 042
     Dates: start: 20241010
  14. CHLORPHENIRAMINE MALEATE [Concomitant]
     Active Substance: CHLORPHENIRAMINE MALEATE
     Indication: Premedication
     Dosage: 1 DF, QW
     Route: 042
     Dates: start: 20240913, end: 20240913
  15. CHLORPHENIRAMINE MALEATE [Concomitant]
     Active Substance: CHLORPHENIRAMINE MALEATE
     Indication: Prophylaxis
     Dosage: 1 DF, QW
     Route: 042
     Dates: start: 20241002, end: 20250117
  16. CHLORPHENIRAMINE MALEATE [Concomitant]
     Active Substance: CHLORPHENIRAMINE MALEATE
     Dosage: 1 DF, EVERYDAY
     Route: 042
     Dates: start: 20250110, end: 20250110
  17. LASIX [Concomitant]
     Active Substance: FUROSEMIDE
     Indication: Prophylaxis
     Dosage: 1 DF, EVERYDAY
     Route: 042
     Dates: start: 20240917, end: 20240917
  18. BANAN [Concomitant]
     Active Substance: CEFPODOXIME PROXETIL
     Indication: Infection prophylaxis
     Dosage: 2 DF, Q12H
     Route: 048
     Dates: start: 20240923, end: 20240930
  19. ACETAMINOPHEN [Concomitant]
     Active Substance: ACETAMINOPHEN
     Indication: Premedication
     Dosage: 1000 MG, QW
     Route: 048
     Dates: start: 20241002, end: 20241002
  20. SUSPEN 8 HOURS ER [Concomitant]
     Dosage: UNK
  21. ULTRACET [Concomitant]
     Active Substance: ACETAMINOPHEN\TRAMADOL HYDROCHLORIDE
     Dosage: UNK
  22. KETOCIN [KETOCONAZOLE] [Concomitant]
     Dosage: UNK
  23. LEVOPLUS [LEVOFLOXACIN] [Concomitant]
     Dosage: UNK
  24. DEXAMETHASONE SODIUM PHOSPHATE [Concomitant]
     Active Substance: DEXAMETHASONE SODIUM PHOSPHATE
     Indication: Prophylaxis
     Dosage: 1 DF, EVERYDAY
     Route: 042
     Dates: start: 20250110, end: 20250110
  25. TRANSAMIN [Concomitant]
     Active Substance: TRANEXAMIC ACID
     Indication: Haemorrhage prophylaxis
     Dosage: 3 DF, Q8H
     Route: 048
     Dates: start: 20250711, end: 20250814
  26. TRANSAMIN [Concomitant]
     Active Substance: TRANEXAMIC ACID
     Dosage: 3 DF, Q8H
     Route: 048
     Dates: start: 20251017
  27. PENIRAMIN [Concomitant]
     Dosage: UNK

REACTIONS (12)
  - Hyperkalaemia [Recovered/Resolved]
  - Pleural effusion [Recovered/Resolved]
  - Dry mouth [Recovering/Resolving]
  - Stomatitis [Recovering/Resolving]
  - Melanocytic naevus [Recovering/Resolving]
  - Nausea [Recovered/Resolved]
  - Diarrhoea [Recovering/Resolving]
  - Chest pain [Recovered/Resolved]
  - Stoma site haemorrhage [Recovered/Resolved]
  - Anaemia [Recovering/Resolving]
  - Abdominal pain upper [Recovering/Resolving]
  - Joint stiffness [Recovering/Resolving]

NARRATIVE: CASE EVENT DATE: 20240913
